FAERS Safety Report 8548577-9 (Version None)
Quarter: 2012Q3

REPORT INFORMATION
  Report Type: 
  Country: None (occurrence: None)
  Receive Date: 20120730
  Receipt Date: 20120719
  Transmission Date: 20120928
  Serious: Yes (Hospitalization)
  Sender: FDA-Public Use
  Company Number: US-BAYER-2012-046784

PATIENT
  Age: 25 Year
  Sex: Female
  Weight: 47.619 kg

DRUGS (3)
  1. NULEV [Concomitant]
     Indication: ABDOMINAL PAIN
     Dosage: UNK
     Dates: start: 20080101
  2. YAZ [Suspect]
     Dosage: 3 MG-0.02 MG,
     Dates: start: 20080901, end: 20100101
  3. PRISTIQ [Concomitant]
     Indication: ANXIETY

REACTIONS (4)
  - BILIARY COLIC [None]
  - BILIARY DYSKINESIA [None]
  - MENTAL DISORDER [None]
  - GALLBLADDER DISORDER [None]
